FAERS Safety Report 6826651-2 (Version None)
Quarter: 2010Q3

REPORT INFORMATION
  Report Type: 
  Country: None (occurrence: None)
  Receive Date: 20100709
  Receipt Date: 20100630
  Transmission Date: 20110219
  Serious: Yes (Hospitalization)
  Sender: FDA-Public Use
  Company Number: DE-PFIZER INC-2010038667

PATIENT
  Age: 65 Year
  Sex: Male
  Weight: 85 kg

DRUGS (16)
  1. *PREDNISOLONE [Suspect]
     Indication: PROSTATE CANCER METASTATIC
     Dosage: 5 MG, 2X/DAY
     Route: 048
     Dates: start: 20090826
  2. BLINDED *NO SUBJECT DRUG [Suspect]
     Indication: PROSTATE CANCER METASTATIC
     Dosage: 37.5 MG, 1X/DAY
     Route: 048
     Dates: start: 20090827
  3. BLINDED *PLACEBO [Suspect]
     Indication: PROSTATE CANCER METASTATIC
     Dosage: 37.5 MG, 1X/DAY
     Route: 048
     Dates: start: 20090827
  4. SUNITINIB MALATE [Suspect]
     Indication: PROSTATE CANCER METASTATIC
     Dosage: 37.5 MG, 1X/DAY
     Route: 048
     Dates: start: 20090827
  5. PANTOPRAZOL [Concomitant]
     Indication: PROPHYLAXIS AGAINST GASTROINTESTINAL ULCER
     Dosage: UNK
     Dates: start: 20090301
  6. PANTOPRAZOL [Concomitant]
     Indication: REFLUX OESOPHAGITIS
  7. CALCIUM [Concomitant]
     Indication: METASTASES TO BONE
     Dosage: UNK
     Dates: start: 20050601
  8. METOCLOPRAMIDE [Concomitant]
     Indication: ANTIEMETIC SUPPORTIVE CARE
     Dosage: UNK
     Route: 048
     Dates: start: 20090301
  9. IBUPROFEN [Concomitant]
     Indication: BONE PAIN
     Dosage: UNK
     Dates: start: 20090301
  10. ZOLEDRONIC ACID [Concomitant]
     Indication: METASTASES TO BONE
     Dosage: UNK
     Dates: start: 20050729
  11. ARANESP [Concomitant]
     Indication: ANAEMIA
     Dosage: UNK
     Dates: start: 20090812
  12. MUCOFALK [Concomitant]
     Indication: CONSTIPATION
     Dosage: UNK
     Dates: start: 20090913, end: 20100415
  13. TRENANTONE [Concomitant]
     Indication: ANDROGEN THERAPY
     Dosage: UNK
     Dates: start: 20070501
  14. GLYCEROL [Concomitant]
     Indication: CONSTIPATION
     Dosage: UNK
     Dates: start: 20091021, end: 20100415
  15. DARBEPOETIN ALFA [Concomitant]
     Dosage: UNK
     Dates: start: 20100116
  16. CHAMOMILE [Concomitant]
     Indication: MUCOSAL INFLAMMATION
     Dosage: UNK
     Dates: start: 20091021, end: 20100414

REACTIONS (1)
  - TRANSIENT ISCHAEMIC ATTACK [None]
